FAERS Safety Report 16038176 (Version 1)
Quarter: 2019Q1

REPORT INFORMATION
  Report Type: Spontaneous
  Country: US (occurrence: US)
  Receive Date: 20190305
  Receipt Date: 20190305
  Transmission Date: 20190418
  Serious: Yes (Other)
  Sender: FDA-Public Use
  Company Number: US-ALLERGAN-1902994US

PATIENT
  Sex: Female

DRUGS (5)
  1. BYSTOLIC [Suspect]
     Active Substance: NEBIVOLOL HYDROCHLORIDE
     Indication: HYPERTENSION
     Dosage: 1 DF, UNK
     Route: 048
  2. AMLODIPINE [Concomitant]
     Active Substance: AMLODIPINE BESYLATE
     Dosage: 2.5 MG, QD
     Route: 048
  3. METFORMIN [Concomitant]
     Active Substance: METFORMIN HYDROCHLORIDE
     Indication: GLUCOSE TOLERANCE IMPAIRED
     Dosage: 500 MG, QD
     Route: 048
  4. XARELTO [Concomitant]
     Active Substance: RIVAROXABAN
     Dosage: UNK
     Route: 048
  5. PAXIL [Concomitant]
     Active Substance: PAROXETINE HYDROCHLORIDE
     Indication: DEPRESSION
     Dosage: UNK
     Route: 048

REACTIONS (3)
  - Dementia [Not Recovered/Not Resolved]
  - Confusional state [Recovered/Resolved]
  - Somnolence [Not Recovered/Not Resolved]

NARRATIVE: CASE EVENT DATE: 2018
